FAERS Safety Report 22735357 (Version 3)
Quarter: 2025Q1

REPORT INFORMATION
  Report Type: Spontaneous
  Country: FR (occurrence: FR)
  Receive Date: 20230721
  Receipt Date: 20250220
  Transmission Date: 20250409
  Serious: Yes (Hospitalization)
  Sender: TEVA
  Company Number: None

PATIENT
  Age: 59 Year
  Sex: Female

DRUGS (17)
  1. PHLOROGLUCINOL [Suspect]
     Active Substance: PHLOROGLUCINOL
     Indication: Abdominal pain
     Route: 042
     Dates: start: 20230523, end: 20230525
  2. SEVOFLURANE [Suspect]
     Active Substance: SEVOFLURANE
     Indication: Anaesthesia
     Route: 042
     Dates: start: 20230522, end: 20230522
  3. NICARDIPINE HYDROCHLORIDE [Suspect]
     Active Substance: NICARDIPINE HYDROCHLORIDE
     Indication: Hypertension
     Route: 042
     Dates: start: 20230523, end: 20230524
  4. PROPOFOL [Suspect]
     Active Substance: PROPOFOL
     Indication: Anaesthesia
     Route: 042
     Dates: start: 20230522, end: 20230522
  5. SUFENTANIL [Suspect]
     Active Substance: SUFENTANIL
     Indication: Anaesthesia
     Route: 042
     Dates: start: 20230522, end: 20230522
  6. KETAMINE [Suspect]
     Active Substance: KETAMINE
     Indication: Anaesthesia
     Route: 042
     Dates: start: 20230522, end: 20230522
  7. ATRACURIUM [Suspect]
     Active Substance: ATRACURIUM
     Indication: Anaesthesia
     Route: 042
     Dates: start: 20230522, end: 20230522
  8. LOVENOX [Suspect]
     Active Substance: ENOXAPARIN SODIUM
     Indication: Thrombosis prophylaxis
     Route: 042
     Dates: start: 20230522, end: 20230601
  9. CEFAZOLIN SODIUM [Suspect]
     Active Substance: CEFAZOLIN SODIUM
     Indication: Antibiotic prophylaxis
     Route: 042
     Dates: start: 20230522, end: 20230522
  10. ULTRAVIST [Suspect]
     Active Substance: IOPROMIDE
     Indication: Product used for unknown indication
     Route: 042
     Dates: start: 20230524, end: 20230524
  11. DEXAMETHASONE [Suspect]
     Active Substance: DEXAMETHASONE
     Indication: Prophylaxis of nausea and vomiting
     Route: 042
     Dates: start: 20230522, end: 20230522
  12. ACUPAN [Suspect]
     Active Substance: NEFOPAM HYDROCHLORIDE
     Indication: Pain prophylaxis
     Route: 042
     Dates: start: 20230522, end: 20230523
  13. ONDANSETRON [Suspect]
     Active Substance: ONDANSETRON
     Indication: Antiemetic supportive care
     Route: 042
     Dates: start: 20230523, end: 20230524
  14. PANTOPRAZOLE [Suspect]
     Active Substance: PANTOPRAZOLE
     Indication: Gastritis prophylaxis
     Route: 042
     Dates: start: 20230522, end: 20230530
  15. TRAMADOL HYDROCHLORIDE [Suspect]
     Active Substance: TRAMADOL HYDROCHLORIDE
     Indication: Pain prophylaxis
     Route: 042
     Dates: start: 20230522, end: 20230522
  16. ROPIVACAINE HYDROCHLORIDE [Suspect]
     Active Substance: ROPIVACAINE HYDROCHLORIDE
     Indication: Anaesthesia
     Route: 042
     Dates: start: 20230522, end: 20230522
  17. PERFALGAN [Suspect]
     Active Substance: ACETAMINOPHEN
     Indication: Antibiotic prophylaxis
     Route: 042
     Dates: start: 20230522, end: 20230525

REACTIONS (1)
  - Acute generalised exanthematous pustulosis [Recovered/Resolved]

NARRATIVE: CASE EVENT DATE: 20230525
